FAERS Safety Report 9004855 (Version 1)
Quarter: 2013Q1

REPORT INFORMATION
  Report Type: Spontaneous
  Country: US (occurrence: None)
  Receive Date: 20130107
  Receipt Date: 20130107
  Transmission Date: 20140127
  Serious: No
  Sender: FDA-Public Use
  Company Number: None

PATIENT
  Age: 51 Year
  Sex: Female
  Weight: 77.57 kg

DRUGS (1)
  1. NEULASTA [Suspect]
     Route: 058

REACTIONS (6)
  - Flushing [None]
  - Hyperhidrosis [None]
  - Pallor [None]
  - Nausea [None]
  - Vomiting [None]
  - Tremor [None]
